FAERS Safety Report 4850531-5 (Version None)
Quarter: 2005Q4

REPORT INFORMATION
  Report Type: 
  Country: None (occurrence: None)
  Receive Date: 20051208
  Receipt Date: 20051121
  Transmission Date: 20060501
  Serious: Yes (Other)
  Sender: FDA-Public Use
  Company Number: 2005145314

PATIENT
  Age: 40 Year
  Sex: Male
  Weight: 68 kg

DRUGS (2)
  1. CLINDAMYCIN HYDROCHLORIDE [Suspect]
     Indication: ABSCESS
     Dosage: 900 MG (300 MG, 3 IN 1 D), ORAL
     Route: 048
     Dates: start: 20050813, end: 20050820
  2. DRUGS FOR TREATMENT OF TUBERCULOSIS (DRUGS FOR TREATMENT OF TUBERCULOS [Suspect]
     Indication: TUBERCULOSIS
     Dosage: ORAL
     Route: 048

REACTIONS (7)
  - ANAEMIA [None]
  - DRUG INTERACTION [None]
  - DYSPNOEA [None]
  - HYPERHIDROSIS [None]
  - HYPERSENSITIVITY [None]
  - PALPITATIONS [None]
  - TACHYCARDIA [None]
